FAERS Safety Report 9498564 (Version 1)
Quarter: 2013Q3

REPORT INFORMATION
  Report Type: Spontaneous
  Country: US (occurrence: US)
  Receive Date: 20130904
  Receipt Date: 20130904
  Transmission Date: 20140515
  Serious: No
  Sender: FDA-Public Use
  Company Number: US-PFIZER INC-2013252704

PATIENT
  Age: 66 Year
  Sex: Male

DRUGS (1)
  1. SUTENT [Suspect]
     Indication: RENAL CANCER
     Dosage: 12.5 MG, CYCLIC (4 TIMES A DAY, 14 DAYS ON AND 7 DAYS OFF)

REACTIONS (2)
  - Disease progression [Unknown]
  - Renal cancer [Unknown]
